FAERS Safety Report 5441555-8 (Version None)
Quarter: 2007Q3

REPORT INFORMATION
  Report Type: 
  Country: None (occurrence: None)
  Receive Date: 20070904
  Receipt Date: 20070830
  Transmission Date: 20080115
  Serious: Yes (Other)
  Sender: FDA-Public Use
  Company Number: DK-BRISTOL-MYERS SQUIBB COMPANY-13712146

PATIENT
  Age: 77 Year
  Sex: Male

DRUGS (7)
  1. BLINDED: APIXABAN [Suspect]
     Indication: THROMBOSIS PROPHYLAXIS
     Route: 048
     Dates: start: 20070214, end: 20070312
  2. BLINDED: PLACEBO [Suspect]
     Indication: THROMBOSIS PROPHYLAXIS
     Route: 048
     Dates: start: 20070214, end: 20070312
  3. DUTASTERIDE [Concomitant]
  4. ENALAPRIL [Concomitant]
  5. METOPROLOL SUCCINATE [Concomitant]
     Dates: start: 20070215
  6. SIMVASTATIN [Concomitant]
     Dates: start: 20070213
  7. TAMSULOSIN HCL [Concomitant]

REACTIONS (1)
  - URINARY BLADDER HAEMORRHAGE [None]
